FAERS Safety Report 25094832 (Version 1)
Quarter: 2025Q1

REPORT INFORMATION
  Report Type: Report from Study
  Country: US (occurrence: US)
  Receive Date: 20250319
  Receipt Date: 20250319
  Transmission Date: 20250409
  Serious: Yes (Other)
  Sender: ALEXION PHARMACEUTICALS
  Company Number: US-AstraZeneca-CH-00825915A

PATIENT
  Age: 77 Year
  Weight: 103.41 kg

DRUGS (2)
  1. TEZEPELUMAB [Suspect]
     Active Substance: TEZEPELUMAB
     Indication: Asthma
     Dosage: 210 MILLIGRAM, Q4W
  2. TEZEPELUMAB [Suspect]
     Active Substance: TEZEPELUMAB

REACTIONS (10)
  - Polyneuropathy [Unknown]
  - Deafness bilateral [Unknown]
  - Acute respiratory distress syndrome [Unknown]
  - Hypoxia [Unknown]
  - Oedema peripheral [Unknown]
  - Insurance issue [Unknown]
  - Bronchospasm [Unknown]
  - Skin disorder [Unknown]
  - Osteoarthritis [Unknown]
  - Musculoskeletal disorder [Unknown]
